FAERS Safety Report 7491928-7 (Version None)
Quarter: 2011Q2

REPORT INFORMATION
  Report Type: 
  Country: None (occurrence: None)
  Receive Date: 20110511
  Receipt Date: 20110504
  Transmission Date: 20111010
  Serious: Yes (Other)
  Sender: FDA-Public Use
  Company Number: DSA_45546_2011

PATIENT
  Sex: Female

DRUGS (8)
  1. BUPROFEN [Concomitant]
  2. COLACE [Concomitant]
  3. DETROL [Concomitant]
  4. ARTANE [Concomitant]
  5. BENAZEPRIL HYDROCHLORIDE [Concomitant]
  6. XENAZINE [Suspect]
     Indication: DYSTONIA
     Dosage: (12.5 MG TID ORAL)
     Route: 048
     Dates: start: 20090901
  7. CARBIDOPA [Concomitant]
  8. PROTONIX [Concomitant]

REACTIONS (2)
  - DYSKINESIA [None]
  - SPEECH DISORDER [None]
